FAERS Safety Report 14448959 (Version 1)
Quarter: 2018Q1

REPORT INFORMATION
  Report Type: Spontaneous
  Country: US (occurrence: US)
  Receive Date: 20180126
  Receipt Date: 20180126
  Transmission Date: 20180509
  Serious: Yes (Hospitalization)
  Sender: FDA-Public Use
  Company Number: US-OTSUKA-DJ201306502

PATIENT

DRUGS (8)
  1. FIBERCON [Concomitant]
     Active Substance: CALCIUM POLYCARBOPHIL
     Route: 065
  2. MULTIVITAMINS [Concomitant]
     Active Substance: VITAMINS
  3. MULTIVITAMIN [Concomitant]
     Active Substance: VITAMINS
     Route: 065
  4. ABILIFY [Suspect]
     Active Substance: ARIPIPRAZOLE
     Indication: AUTISM SPECTRUM DISORDER
     Route: 048
     Dates: start: 2006
  5. ATIVAN [Suspect]
     Active Substance: LORAZEPAM
     Indication: FEELING ABNORMAL
     Route: 042
     Dates: start: 201305
  6. LORAZEPAM. [Suspect]
     Active Substance: LORAZEPAM
     Indication: FEELING ABNORMAL
     Dosage: 2MG, 4MG, 6MG AND IS CURRENTLY TAKING 0.5MG
     Route: 042
     Dates: start: 201305
  7. VITAMIN B [Concomitant]
     Active Substance: VITAMIN B
     Route: 065
  8. MAGNESIUM [Concomitant]
     Active Substance: MAGNESIUM
     Route: 065

REACTIONS (7)
  - Feeling abnormal [Unknown]
  - Viral infection [Unknown]
  - Parkinsonism [Unknown]
  - Depressed mood [Unknown]
  - Hyperkeratosis [Unknown]
  - Off label use [Unknown]
  - Posturing [Unknown]

NARRATIVE: CASE EVENT DATE: 2006
